FAERS Safety Report 8506918 (Version 3)
Quarter: 2013Q4

REPORT INFORMATION
  Report Type: Spontaneous
  Country: US (occurrence: US)
  Receive Date: 20120412
  Receipt Date: 20131220
  Transmission Date: 20140711
  Serious: No
  Sender: FDA-Public Use
  Company Number: US-ASTRAZENECA-2011SE35566

PATIENT
  Age: 45 Year
  Sex: Male
  Weight: 76.7 kg

DRUGS (4)
  1. NEXIUM [Suspect]
     Indication: GASTROOESOPHAGEAL REFLUX DISEASE
     Route: 048
     Dates: start: 2011, end: 20131209
  2. CITALOPRAM [Concomitant]
     Indication: ANXIETY
  3. CITALOPRAM [Concomitant]
     Indication: DEPRESSION
  4. BENICAR/HCTZ [Concomitant]
     Indication: BLOOD PRESSURE ABNORMAL

REACTIONS (5)
  - Gastrooesophageal reflux disease [Unknown]
  - Aphagia [Unknown]
  - Gastric disorder [Unknown]
  - Off label use [Not Recovered/Not Resolved]
  - Drug dose omission [Not Recovered/Not Resolved]
